FAERS Safety Report 6607877-X (Version None)
Quarter: 2010Q1

REPORT INFORMATION
  Report Type: 
  Country: None (occurrence: None)
  Receive Date: 20100301
  Receipt Date: 20100222
  Transmission Date: 20100710
  Serious: Yes (Death)
  Sender: FDA-Public Use
  Company Number: CHPA2010US03715

PATIENT
  Age: 76 Year
  Sex: Female

DRUGS (4)
  1. BISMUTH SUBSALICYLATE (NCH) [Suspect]
  2. ACETAMINOPHEN AND HYDROCODONE BITARTRATE [Suspect]
  3. IRBESARTAN + HYDROCHLOROTHIAZIDE [Suspect]
  4. LEVOTHYROXINE [Suspect]

REACTIONS (2)
  - CARDIO-RESPIRATORY ARREST [None]
  - COMPLETED SUICIDE [None]
